FAERS Safety Report 23137326 (Version 1)
Quarter: 2023Q4

REPORT INFORMATION
  Report Type: Spontaneous
  Country: CN (occurrence: CN)
  Receive Date: 20231102
  Receipt Date: 20231102
  Transmission Date: 20240110
  Serious: Yes (Other)
  Sender: FDA-Public Use
  Company Number: CN-ALCON LABORATORIES-ALC2023CN004872

PATIENT
  Age: 56 Year
  Sex: Male
  Weight: 66 kg

DRUGS (2)
  1. FLUORESCEIN SODIUM [Suspect]
     Active Substance: FLUORESCEIN SODIUM
     Indication: Angiogram retina
     Dosage: 5 ML, ONCE/SINGLE
     Route: 042
     Dates: start: 20231002, end: 20231002
  2. SODIUM CHLORIDE [Concomitant]
     Active Substance: SODIUM CHLORIDE
     Indication: Vehicle solution use
     Dosage: 10 ML, ONCE/SINGLE
     Route: 042
     Dates: start: 20231002, end: 20231002

REACTIONS (1)
  - Groin pain [Recovering/Resolving]

NARRATIVE: CASE EVENT DATE: 20231002
